FAERS Safety Report 5968599-1 (Version None)
Quarter: 2008Q4

REPORT INFORMATION
  Report Type: 
  Country: None (occurrence: None)
  Receive Date: 20081126
  Receipt Date: 20081121
  Transmission Date: 20090506
  Serious: Yes (Hospitalization, Disabling)
  Sender: FDA-Public Use
  Company Number: CG-MERCK-0811USA03678

PATIENT
  Age: 45 Year
  Sex: Female

DRUGS (1)
  1. STROMECTOL [Suspect]
     Indication: ONCHOCERCIASIS
     Route: 048
     Dates: start: 20080716

REACTIONS (7)
  - AGGRESSION [None]
  - AGITATION [None]
  - CONJUNCTIVAL HAEMORRHAGE [None]
  - HEADACHE [None]
  - LOGORRHOEA [None]
  - PYREXIA [None]
  - SPEECH DISORDER DEVELOPMENTAL [None]
